FAERS Safety Report 15593197 (Version 4)
Quarter: 2019Q3

REPORT INFORMATION
  Report Type: Spontaneous
  Country: US (occurrence: US)
  Receive Date: 20181107
  Receipt Date: 20190924
  Transmission Date: 20191004
  Serious: No
  Sender: FDA-Public Use
  Company Number: US-PFIZER INC-2018444951

PATIENT
  Age: 56 Year
  Sex: Male
  Weight: 136 kg

DRUGS (2)
  1. SOMAVERT [Suspect]
     Active Substance: PEGVISOMANT
     Dosage: 30 MG, DAILY (SEVEN DAYS PER WEEK)
     Route: 058
  2. SOMAVERT [Suspect]
     Active Substance: PEGVISOMANT
     Indication: MONOPLEGIA
     Dosage: 30 MG, DAILY [30 MG VIAL WITH 1 ML OF DILUENT AND GIVE 1 ML (100 UNITS)]
     Route: 058

REACTIONS (8)
  - Extra dose administered [Unknown]
  - Product dose omission [Unknown]
  - Malaise [Unknown]
  - Product use in unapproved indication [Unknown]
  - Fatigue [Unknown]
  - Muscular weakness [Unknown]
  - Off label use [Unknown]
  - Urinary tract infection [Unknown]

NARRATIVE: CASE EVENT DATE: 20190105
